FAERS Safety Report 5000323-1 (Version None)
Quarter: 2006Q2

REPORT INFORMATION
  Report Type: 
  Country: None (occurrence: None)
  Receive Date: 20060511
  Receipt Date: 20060504
  Transmission Date: 20061013
  Serious: Yes (Death)
  Sender: FDA-Public Use
  Company Number: US-MERCK-0605USA01390

PATIENT
  Age: 70 Year
  Sex: Female
  Weight: 64 kg

DRUGS (1)
  1. VIOXX [Suspect]
     Indication: ARTHRITIS
     Route: 048
     Dates: start: 20000301, end: 20040101

REACTIONS (7)
  - CAROTID ARTERY OCCLUSION [None]
  - CAROTID BRUIT [None]
  - HYPERTENSIVE HEART DISEASE [None]
  - MIGRAINE [None]
  - MYOCARDIAL INFARCTION [None]
  - SUDDEN CARDIAC DEATH [None]
  - TRANSIENT ISCHAEMIC ATTACK [None]
